FAERS Safety Report 4816459-1 (Version None)
Quarter: 2005Q4

REPORT INFORMATION
  Report Type: 
  Country: None (occurrence: None)
  Receive Date: 20051028
  Receipt Date: 20051020
  Transmission Date: 20060501
  Serious: Yes (Other)
  Sender: FDA-Public Use
  Company Number: 200510639BNE

PATIENT
  Age: 59 Year
  Sex: Male
  Weight: 148 kg

DRUGS (5)
  1. CIPROFLOXACIN [Suspect]
     Indication: PROSTATITIS
     Dosage: 250 MG, BID, ORAL
     Route: 048
     Dates: start: 20050815
  2. ATENOLOL [Concomitant]
  3. LISINOPRIL [Concomitant]
  4. BENDROFLUMETHAZIDE [Concomitant]
  5. ASPIRIN [Concomitant]

REACTIONS (1)
  - BLOOD CREATINE PHOSPHOKINASE INCREASED [None]
